FAERS Safety Report 6731888-7 (Version None)
Quarter: 2010Q2

REPORT INFORMATION
  Report Type: 
  Country: None (occurrence: None)
  Receive Date: 20100519
  Receipt Date: 20100511
  Transmission Date: 20101027
  Serious: Yes (Other)
  Sender: FDA-Public Use
  Company Number: IE-ASTRAZENECA-2010SE21448

PATIENT
  Age: 46 Year
  Sex: Female

DRUGS (2)
  1. BUPIVACAINE AND ADRENALINE [Suspect]
     Indication: NERVE BLOCK
     Route: 065
     Dates: start: 20100415
  2. NAROPIN [Suspect]
     Indication: NERVE BLOCK
     Route: 037
     Dates: start: 20100415

REACTIONS (1)
  - GRAND MAL CONVULSION [None]
